FAERS Safety Report 8583992-9 (Version None)
Quarter: 2012Q3

REPORT INFORMATION
  Report Type: 
  Country: None (occurrence: None)
  Receive Date: 20120810
  Receipt Date: 20120625
  Transmission Date: 20120928
  Serious: No
  Sender: FDA-Public Use
  Company Number: US-009507513-1208USA002086

PATIENT

DRUGS (2)
  1. MIRALAX [Suspect]
     Indication: FAECALOMA
     Dosage: UNK, BID
     Route: 048
  2. MIRALAX [Suspect]
     Indication: MEDICAL OBSERVATION

REACTIONS (1)
  - OVERDOSE [None]
